FAERS Safety Report 5280795-8 (Version None)
Quarter: 2007Q1

REPORT INFORMATION
  Report Type: 
  Country: None (occurrence: None)
  Receive Date: 20070329
  Receipt Date: 20070316
  Transmission Date: 20070707
  Serious: Yes (Hospitalization)
  Sender: FDA-Public Use
  Company Number: DE-ELI_LILLY_AND_COMPANY-DE200703004100

PATIENT
  Age: 86 Year
  Sex: Female

DRUGS (1)
  1. FLUOXETINE HCL [Suspect]
     Dosage: 20 MG, DAILY (1/D)
     Route: 048

REACTIONS (1)
  - PROGRESSIVE BULBAR PALSY [None]
